FAERS Safety Report 9929771 (Version 1)
Quarter: 2014Q1

REPORT INFORMATION
  Report Type: Spontaneous
  Country: US (occurrence: US)
  Receive Date: 20140227
  Receipt Date: 20140227
  Transmission Date: 20141002
  Serious: No
  Sender: FDA-Public Use
  Company Number: US-PURDUE-USA-2014-0110913

PATIENT
  Sex: Male

DRUGS (2)
  1. INTERMEZZO [Suspect]
     Indication: MIDDLE INSOMNIA
     Dosage: 3.5 MG, PRN
     Route: 060
     Dates: start: 201308
  2. MORPHINE SULFATE (SIMILAR TO NDA 19-516) [Concomitant]
     Indication: PAIN
     Dosage: 30 MG, BID
     Route: 048
     Dates: start: 2009

REACTIONS (2)
  - Altered state of consciousness [Not Recovered/Not Resolved]
  - Drug ineffective [Not Recovered/Not Resolved]
